FAERS Safety Report 5471671-6 (Version None)
Quarter: 2007Q3

REPORT INFORMATION
  Report Type: 
  Country: None (occurrence: None)
  Receive Date: 20070928
  Receipt Date: 20070321
  Transmission Date: 20080115
  Serious: No
  Sender: FDA-Public Use
  Company Number: US-BRISTOL-MYERS SQUIBB COMPANY-13721238

PATIENT
  Age: 6 Decade
  Sex: Male
  Weight: 89 kg

DRUGS (9)
  1. DEFINITY [Suspect]
     Indication: ECHOCARDIOGRAM
     Route: 040
     Dates: start: 20070320, end: 20070320
  2. PEPCID [Concomitant]
  3. PHENERGAN HCL [Concomitant]
  4. OXYCODONE HCL [Concomitant]
  5. VORICONAZOLE [Concomitant]
  6. METOPROLOL SUCCINATE [Concomitant]
  7. LISINOPRIL [Concomitant]
  8. ZOCOR [Concomitant]
  9. SPIRONOLACTONE [Concomitant]

REACTIONS (5)
  - BACK PAIN [None]
  - CHEST DISCOMFORT [None]
  - ERUCTATION [None]
  - HYPOTENSION [None]
  - PARAESTHESIA [None]
